FAERS Safety Report 7793223-5 (Version None)
Quarter: 2011Q4

REPORT INFORMATION
  Report Type: 
  Country: None (occurrence: None)
  Receive Date: 20111003
  Receipt Date: 20110921
  Transmission Date: 20120403
  Serious: Yes (Hospitalization)
  Sender: FDA-Public Use
  Company Number: DE-ELI_LILLY_AND_COMPANY-DE201109006472

PATIENT
  Sex: Female

DRUGS (3)
  1. BYETTA [Suspect]
     Indication: TYPE 2 DIABETES MELLITUS
     Dosage: 10 UG, BID
     Route: 058
     Dates: start: 20090101, end: 20100901
  2. METFORMIN HCL [Concomitant]
     Dosage: 1000 MG, BID
  3. REPAGLINIDE [Concomitant]
     Indication: DIABETES PROPHYLAXIS
     Dosage: 0.5 MG, PRN

REACTIONS (1)
  - PANCREATITIS ACUTE [None]
